FAERS Safety Report 8809395 (Version 2)
Quarter: 2012Q4

REPORT INFORMATION
  Report Type: 
  Country: GB (occurrence: GB)
  Receive Date: 20120926
  Receipt Date: 20121026
  Transmission Date: 20130627
  Serious: Yes (Other)
  Sender: FDA-Public Use
  Company Number: GB-JNJFOC-20120909528

PATIENT
  Sex: Male

DRUGS (1)
  1. NICORETTE INHALTER 10 MG [Suspect]
     Indication: SMOKING CESSATION THERAPY
     Dosage: previously used the 42 pack (10mg per cartridge) and was using the 20 pack (15mg per cartridge)
     Route: 065
     Dates: start: 2009

REACTIONS (4)
  - Nicotine dependence [Not Recovered/Not Resolved]
  - Incorrect drug administration duration [Unknown]
  - Overdose [Not Recovered/Not Resolved]
  - Adverse drug reaction [Unknown]
